FAERS Safety Report 10035285 (Version 1)
Quarter: 2014Q1

REPORT INFORMATION
  Report Type: Spontaneous
  Country: US (occurrence: None)
  Receive Date: 20140306
  Receipt Date: 20140306
  Transmission Date: 20141002
  Serious: Yes (Other)
  Sender: FDA-Public Use
  Company Number: 163-21880-13122167

PATIENT
  Age: 72 Year
  Sex: Male
  Weight: 80.7 kg

DRUGS (9)
  1. REVLIMID (LENALIDOMIDE) (10 MILLIGRAM, CAPSULES) [Suspect]
     Indication: PLASMA CELL MYELOMA
     Dosage: 10 MG, 21 IN 28 D, PO
     Route: 048
     Dates: start: 201307
  2. SPIRONOLACTONE (SPIRONOLACTONE) (TABLETS) [Concomitant]
  3. MAGNESIUM OXIDE (MAGNESIUM OXIDE) (TABLETS) [Concomitant]
  4. THERA-M (THERA-M) (TABLETS) [Concomitant]
  5. ASPIRINE (ACETYLSALICYLIC ACID) (ENTERIC-COATED TABLET) [Concomitant]
  6. BENADRYL (DIPHENHYDRAMINE HYDROCHLORIDE) (GEL) [Concomitant]
  7. PREDNISONE (PREDNISONE) (TABLETS) [Concomitant]
  8. GABAPENTIN (GABAPENTIN) (CAPSULES) [Concomitant]
  9. DOCUSATE SODIUM-SENNOSIDES (COLOXYL WITH SENNA) (TABLETS) [Concomitant]

REACTIONS (2)
  - Fall [None]
  - Excoriation [None]
